FAERS Safety Report 8552497-3 (Version None)
Quarter: 2012Q3

REPORT INFORMATION
  Report Type: 
  Country: None (occurrence: None)
  Receive Date: 20120724
  Receipt Date: 20120724
  Transmission Date: 20120928
  Serious: No
  Sender: FDA-Public Use
  Company Number: None

PATIENT
  Age: 60 Year
  Sex: Female

DRUGS (1)
  1. ENBREL [Suspect]
     Dosage: 50 MG EVERY 7 DAYS SUBCUTANEOUS
     Route: 058
     Dates: start: 20120507, end: 20120719

REACTIONS (1)
  - CONTUSION [None]
